FAERS Safety Report 5851755-0 (Version None)
Quarter: 2008Q3

REPORT INFORMATION
  Report Type: 
  Country: None (occurrence: None)
  Receive Date: 20080808
  Receipt Date: 20071015
  Transmission Date: 20090109
  Serious: Yes (Hospitalization)
  Sender: FDA-Public Use
  Company Number: US-JNJFOC-20070903916

PATIENT
  Age: 6 Year
  Sex: Male
  Weight: 21.7727 kg

DRUGS (2)
  1. CHILDREN'S MOTRIN [Suspect]
     Indication: PYREXIA
     Dates: start: 20070103
  2. UNSPECIFIED ASTHMA MEDICATION (ANTI ASTHMATICS) INHALATION [Concomitant]

REACTIONS (1)
  - STEVENS-JOHNSON SYNDROME [None]
